FAERS Safety Report 10309187 (Version 3)
Quarter: 2020Q1

REPORT INFORMATION
  Report Type: Report from Study
  Country: None (occurrence: US)
  Receive Date: 20140716
  Receipt Date: 20200217
  Transmission Date: 20200409
  Serious: Yes (Other)
  Sender: FDA-Public Use
  Company Number: US-ABBVIE-14P-163-1259243-00

PATIENT
  Age: 32 Year
  Sex: Female

DRUGS (6)
  1. RETROVIR [Suspect]
     Active Substance: ZIDOVUDINE
     Indication: ANTIRETROVIRAL THERAPY
     Dosage: 2 MG/KG/HR COURSE 1
     Route: 042
     Dates: start: 20131029, end: 20131030
  2. RETROVIR [Suspect]
     Active Substance: ZIDOVUDINE
     Dosage: 1 MG/KG/HR COURSE 2
     Route: 042
     Dates: start: 20131030, end: 20131030
  3. TRUVADA [Suspect]
     Active Substance: EMTRICITABINE\TENOFOVIR DISOPROXIL FUMARATE
     Indication: ANTIRETROVIRAL THERAPY
     Dosage: COURSE 1
     Route: 048
     Dates: start: 20130725
  4. COMBIVIR [Suspect]
     Active Substance: LAMIVUDINE\ZIDOVUDINE
     Indication: ANTIRETROVIRAL THERAPY
     Dosage: COURSE 1
     Route: 048
     Dates: end: 20130725
  5. ISENTRESS [Suspect]
     Active Substance: RALTEGRAVIR POTASSIUM
     Indication: ANTIRETROVIRAL THERAPY
     Route: 048
     Dates: start: 20130725
  6. KALETRA [Suspect]
     Active Substance: LOPINAVIR\RITONAVIR
     Indication: ANTIRETROVIRAL THERAPY
     Dosage: COURSE 1
     Route: 048
     Dates: end: 20130725

REACTIONS (1)
  - Prolonged labour [Unknown]

NARRATIVE: CASE EVENT DATE: 20131030
